FAERS Safety Report 11063205 (Version 3)
Quarter: 2015Q3

REPORT INFORMATION
  Report Type: Report from Study
  Country: DE (occurrence: DE)
  Receive Date: 20150424
  Receipt Date: 20150723
  Transmission Date: 20151125
  Serious: Yes (Life-Threatening, Other)
  Sender: FDA-Public Use
  Company Number: DE-ABBVIE-15K-062-1380332-00

PATIENT
  Sex: Female

DRUGS (1)
  1. HUMIRA [Suspect]
     Active Substance: ADALIMUMAB
     Indication: ANKYLOSING SPONDYLITIS
     Route: 058
     Dates: start: 201305

REACTIONS (5)
  - Listless [Unknown]
  - Apathy [Unknown]
  - Suicidal ideation [Not Recovered/Not Resolved]
  - Essential tremor [Unknown]
  - Mental disorder [Not Recovered/Not Resolved]

NARRATIVE: CASE EVENT DATE: 2013
